FAERS Safety Report 6753849-4 (Version None)
Quarter: 2010Q2

REPORT INFORMATION
  Report Type: 
  Country: None (occurrence: None)
  Receive Date: 20100603
  Receipt Date: 20100520
  Transmission Date: 20101027
  Serious: Yes (Other)
  Sender: FDA-Public Use
  Company Number: JP-ELI_LILLY_AND_COMPANY-JP201005005937

PATIENT
  Age: 44 Year
  Sex: Male

DRUGS (4)
  1. CYMBALTA [Suspect]
     Indication: DEPRESSION
     Dosage: 20 MG, DAILY (1/D)
     Route: 048
     Dates: start: 20100511, end: 20100518
  2. TOLEDOMIN [Concomitant]
     Route: 048
  3. TECIPUL [Concomitant]
     Route: 048
  4. LENDORMIN [Concomitant]
     Route: 048

REACTIONS (6)
  - ANXIETY [None]
  - CHEILITIS [None]
  - DRUG ERUPTION [None]
  - DYSARTHRIA [None]
  - NAUSEA [None]
  - URINARY RETENTION [None]
